FAERS Safety Report 8879761 (Version 3)
Quarter: 2013Q3

REPORT INFORMATION
  Report Type: Report from Study
  Country: JP (occurrence: JP)
  Receive Date: 20121101
  Receipt Date: 20130930
  Transmission Date: 20140515
  Serious: Yes (Hospitalization)
  Sender: FDA-Public Use
  Company Number: JP-VERTEX PHARMACEUTICAL INC.-2012-023817

PATIENT
  Age: 53 Year
  Sex: Male

DRUGS (5)
  1. VX-950 (TELAPREVIR) [Suspect]
     Indication: CHRONIC HEPATITIS C
     Dosage: 1500 MG, QD
     Route: 048
     Dates: start: 20120912, end: 20121024
  2. RIBAVIRIN [Suspect]
     Indication: CHRONIC HEPATITIS C
     Dosage: 800 MG, UNK
     Route: 048
     Dates: start: 20120912, end: 20120912
  3. RIBAVIRIN [Suspect]
     Dosage: 600 MG, UNK
     Route: 048
     Dates: start: 20120913
  4. PEGINTERFERON ALFA-2B [Suspect]
     Indication: CHRONIC HEPATITIS C
     Dosage: 1.5 ?G/KG, QW
     Route: 058
     Dates: start: 20120912
  5. LENDORMIN DAINIPPO [Concomitant]
     Dosage: 0.25 MG, QD
     Route: 048

REACTIONS (2)
  - Decreased appetite [Not Recovered/Not Resolved]
  - Decreased appetite [Recovered/Resolved]
